FAERS Safety Report 8085302-2 (Version None)
Quarter: 2012Q1

REPORT INFORMATION
  Report Type: 
  Country: None (occurrence: None)
  Receive Date: 20120128
  Receipt Date: 20120123
  Transmission Date: 20120608
  Serious: Yes (Other)
  Sender: FDA-Public Use
  Company Number: BR-ABBOTT-11P-020-0802877-00

PATIENT
  Sex: Female
  Weight: 41 kg

DRUGS (9)
  1. CHOLECALCIFEROL [Concomitant]
     Indication: PRODUCT USED FOR UNKNOWN INDICATION
     Dosage: EACH DROP CONTAINS 200 UNITS
  2. CREON [Suspect]
     Indication: PANCREATIC CYST
     Route: 048
  3. SYNTHROID [Concomitant]
     Indication: THYROID DISORDER
     Dosage: DAILY DOSE: 1 DOSAGE FORM
     Route: 048
  4. VITAMIN TAB [Concomitant]
     Indication: VITAMIN SUPPLEMENTATION
     Dosage: DAILY DOSE:  UNKNOWN
     Route: 065
     Dates: start: 20110101
  5. OMEPRAZOLE [Concomitant]
     Indication: PRODUCT USED FOR UNKNOWN INDICATION
  6. BETAHISTINE DIHYDROCHLORIDE [Concomitant]
     Indication: PRODUCT USED FOR UNKNOWN INDICATION
  7. CAL D VITA [Concomitant]
     Indication: PRODUCT USED FOR UNKNOWN INDICATION
     Dosage: CALCIUM 600MG/VITAMIN D 400MG
  8. CREON [Suspect]
     Dates: start: 20110201
  9. VITAMIN TAB [Concomitant]
     Indication: PRODUCT USED FOR UNKNOWN INDICATION
     Dosage: DAILY DOSE:  UNKNOWN
     Route: 065
     Dates: start: 20110101

REACTIONS (6)
  - BILE DUCT CANCER [None]
  - LUNG NEOPLASM MALIGNANT [None]
  - WEIGHT DECREASED [None]
  - BLOOD PRESSURE INCREASED [None]
  - JAUNDICE [None]
  - PANCREATIC OPERATION [None]
